FAERS Safety Report 6306530-X (Version None)
Quarter: 2009Q3

REPORT INFORMATION
  Report Type: 
  Country: None (occurrence: None)
  Receive Date: 20090812
  Receipt Date: 20090731
  Transmission Date: 20100115
  Serious: Yes (Other)
  Sender: FDA-Public Use
  Company Number: US-WATSON-2009-06204

PATIENT
  Age: 82 Year
  Sex: Male

DRUGS (2)
  1. FLUOROURACIL [Suspect]
     Indication: LARYNGEAL CANCER
     Dosage: UNK
     Dates: start: 20010101, end: 20010501
  2. CISPLATIN [Suspect]
     Indication: LARYNGEAL CANCER
     Dosage: UNK
     Dates: start: 20010101, end: 20010501

REACTIONS (1)
  - ANGIOSARCOMA [None]
